FAERS Safety Report 6160165-0 (Version None)
Quarter: 2009Q2

REPORT INFORMATION
  Report Type: 
  Country: None (occurrence: None)
  Receive Date: 20090420
  Receipt Date: 20090410
  Transmission Date: 20091009
  Serious: Yes (Death, Hospitalization)
  Sender: FDA-Public Use
  Company Number: A0779239A

PATIENT
  Age: 77 Year
  Sex: Female
  Weight: 98.6 kg

DRUGS (7)
  1. AVANDIA [Suspect]
     Indication: DIABETES MELLITUS
     Dosage: 8MG PER DAY
     Route: 048
     Dates: start: 20050208, end: 20070201
  2. KLONOPIN [Concomitant]
  3. PREVACID [Concomitant]
  4. SINGULAIR [Concomitant]
  5. ALBUTEROL [Concomitant]
  6. LISINOPRIL [Concomitant]
  7. SYNTHROID [Concomitant]

REACTIONS (3)
  - DEATH [None]
  - INJURY [None]
  - MYOCARDIAL INFARCTION [None]
